FAERS Safety Report 6505334-2 (Version None)
Quarter: 2009Q4

REPORT INFORMATION
  Report Type: 
  Country: None (occurrence: None)
  Receive Date: 20091218
  Receipt Date: 20091209
  Transmission Date: 20100525
  Serious: Yes (Disabling)
  Sender: FDA-Public Use
  Company Number: CA-WYE-G04548609

PATIENT
  Sex: Female

DRUGS (3)
  1. PRISTIQ [Suspect]
     Indication: SLEEP DISORDER
     Route: 048
     Dates: start: 20090806, end: 20090809
  2. PRISTIQ [Suspect]
     Indication: AFFECTIVE DISORDER
  3. PRISTIQ [Suspect]
     Indication: DEPRESSION

REACTIONS (1)
  - MYOCLONUS [None]
